FAERS Safety Report 7114218-0 (Version None)
Quarter: 2010Q4

REPORT INFORMATION
  Report Type: 
  Country: None (occurrence: None)
  Receive Date: 20101119
  Receipt Date: 20101110
  Transmission Date: 20110411
  Serious: Yes (Hospitalization)
  Sender: FDA-Public Use
  Company Number: US-SANOFI-AVENTIS-2010SA068605

PATIENT
  Age: 81 Year
  Sex: Female

DRUGS (5)
  1. MULTAQ [Suspect]
     Route: 048
     Dates: start: 20101001, end: 20101101
  2. WARFARIN [Suspect]
     Route: 065
     Dates: end: 20101101
  3. LISINOPRIL [Concomitant]
  4. CELEXA [Concomitant]
  5. MEGACE [Concomitant]

REACTIONS (4)
  - ACTIVATED PARTIAL THROMBOPLASTIN TIME PROLONGED [None]
  - BLOOD BILIRUBIN INCREASED [None]
  - INTERNATIONAL NORMALISED RATIO INCREASED [None]
  - JAUNDICE CHOLESTATIC [None]
